FAERS Safety Report 4719325-5 (Version None)
Quarter: 2005Q3

REPORT INFORMATION
  Report Type: 
  Country: None (occurrence: None)
  Receive Date: 20050721
  Receipt Date: 20050429
  Transmission Date: 20060218
  Serious: No
  Sender: FDA-Public Use
  Company Number: US-GLAXOSMITHKLINE-A0556350A

PATIENT

DRUGS (1)
  1. MALARONE [Suspect]
     Indication: MALARIA
     Route: 048

REACTIONS (1)
  - MUSCLE DISORDER [None]
